FAERS Safety Report 9302908 (Version 3)
Quarter: 2013Q2

REPORT INFORMATION
  Report Type: Spontaneous
  Country: JP (occurrence: JP)
  Receive Date: 20130522
  Receipt Date: 20130614
  Transmission Date: 20140414
  Serious: Yes (Death, Hospitalization, Other)
  Sender: FDA-Public Use
  Company Number: JP-JNJFOC-20130511897

PATIENT
  Age: 71 Year
  Sex: Female
  Weight: 36 kg

DRUGS (13)
  1. REMICADE [Suspect]
     Indication: RHEUMATOID ARTHRITIS
     Dosage: 35 INFUSIONS TILL DATE
     Route: 042
  2. REMICADE [Suspect]
     Indication: RHEUMATOID ARTHRITIS
     Route: 042
     Dates: start: 20130322
  3. METOLATE [Suspect]
     Indication: RHEUMATOID ARTHRITIS
     Route: 048
     Dates: end: 20130426
  4. PREDONINE [Suspect]
     Indication: RHEUMATOID ARTHRITIS
     Route: 048
     Dates: end: 20130429
  5. PROGRAF [Suspect]
     Indication: RHEUMATOID ARTHRITIS
     Route: 048
     Dates: end: 20130426
  6. FOLIAMIN [Concomitant]
     Indication: FOLATE DEFICIENCY
     Route: 048
     Dates: end: 20130502
  7. GASTER D [Concomitant]
     Indication: GASTROOESOPHAGEAL REFLUX DISEASE
     Route: 048
  8. GASTER D [Concomitant]
     Indication: GASTROOESOPHAGEAL REFLUX DISEASE
     Route: 048
     Dates: end: 20130426
  9. BONALON [Concomitant]
     Indication: OSTEOPOROSIS
     Route: 048
     Dates: end: 20130426
  10. EDIROL [Concomitant]
     Indication: OSTEOPOROSIS
     Route: 065
     Dates: end: 20130426
  11. CALCIUM LACTATE [Concomitant]
     Indication: OSTEOPOROSIS
     Route: 048
  12. CALCIUM LACTATE [Concomitant]
     Indication: OSTEOPOROSIS
     Route: 048
     Dates: end: 20130426
  13. CRESTOR [Concomitant]
     Indication: HYPERLIPIDAEMIA
     Route: 048
     Dates: end: 20130426

REACTIONS (5)
  - Pneumonia [Fatal]
  - Anaemia [Unknown]
  - Altered state of consciousness [Unknown]
  - Pleural effusion [Unknown]
  - Blood pressure increased [Recovered/Resolved]
